FAERS Safety Report 11390113 (Version 1)
Quarter: 2015Q3

REPORT INFORMATION
  Report Type: Spontaneous
  Country: US (occurrence: None)
  Receive Date: 20150814
  Receipt Date: 20150814
  Transmission Date: 20151125
  Serious: Yes (Hospitalization)
  Sender: FDA-Public Use
  Company Number: None

PATIENT
  Age: 80 Year
  Sex: Male
  Weight: 96 kg

DRUGS (11)
  1. ECOTRIN [Suspect]
     Active Substance: ASPIRIN
     Indication: CORONARY ARTERY DISEASE
     Route: 048
  2. AMIODARONE [Concomitant]
     Active Substance: AMIODARONE
  3. WARFARIN 1MG PO DAILY [Suspect]
     Active Substance: WARFARIN
     Indication: ATRIAL FIBRILLATION
     Dosage: CHRONIC
     Route: 048
  4. MVI [Concomitant]
     Active Substance: VITAMINS
  5. CYANOCOBALAMIN. [Concomitant]
     Active Substance: CYANOCOBALAMIN
  6. NEURONTIN [Concomitant]
     Active Substance: GABAPENTIN
  7. ZOLPIDEM [Concomitant]
     Active Substance: ZOLPIDEM\ZOLPIDEM TARTRATE
  8. BENADRYL [Concomitant]
     Active Substance: DIPHENHYDRAMINE HYDROCHLORIDE
  9. ZYRTEC [Concomitant]
     Active Substance: CETIRIZINE HYDROCHLORIDE
  10. SYNTHROID [Concomitant]
     Active Substance: LEVOTHYROXINE SODIUM
  11. ZOCOR [Concomitant]
     Active Substance: SIMVASTATIN

REACTIONS (3)
  - Injury [None]
  - Haematoma [None]
  - Haemorrhagic anaemia [None]

NARRATIVE: CASE EVENT DATE: 20150706
